FAERS Safety Report 19094641 (Version 2)
Quarter: 2021Q2

REPORT INFORMATION
  Report Type: Report from Study
  Country: US (occurrence: US)
  Receive Date: 20210405
  Receipt Date: 20210604
  Transmission Date: 20210717
  Serious: No
  Sender: FDA-Public Use
  Company Number: US-B.I. PHARMACEUTICALS,INC./RIDGEFIELD-2021-BI-095021

PATIENT
  Age: 79 Year
  Sex: Male

DRUGS (2)
  1. OFEV [Suspect]
     Active Substance: NINTEDANIB
     Indication: INTERSTITIAL LUNG DISEASE
     Dosage: 150MG BID
     Route: 048
     Dates: start: 20210308, end: 20210401
  2. OFEV [Suspect]
     Active Substance: NINTEDANIB
     Indication: SYSTEMIC SCLERODERMA
     Dosage: 150MG BID
     Route: 048
     Dates: start: 20210228, end: 20210326

REACTIONS (3)
  - Contusion [Not Recovered/Not Resolved]
  - Contusion [Recovering/Resolving]
  - Gastric disorder [Recovered/Resolved]

NARRATIVE: CASE EVENT DATE: 202103
